FAERS Safety Report 5173734-1 (Version None)
Quarter: 2006Q4

REPORT INFORMATION
  Report Type: 
  Country: None (occurrence: None)
  Receive Date: 20061214
  Receipt Date: 20061211
  Transmission Date: 20070319
  Serious: Yes (Other)
  Sender: FDA-Public Use
  Company Number: 2006UW27388

PATIENT
  Age: 19887 Day
  Sex: Female
  Weight: 47.6 kg

DRUGS (3)
  1. CRESTOR [Suspect]
     Indication: BLOOD CHOLESTEROL INCREASED
     Route: 048
     Dates: start: 20061204
  2. DILTIAZEM HCL [Concomitant]
  3. TOPROL-XL [Concomitant]
     Route: 048

REACTIONS (4)
  - GAIT DISTURBANCE [None]
  - HOT FLUSH [None]
  - MUSCULOSKELETAL PAIN [None]
  - PAIN IN EXTREMITY [None]
